FAERS Safety Report 10951934 (Version 1)
Quarter: 2015Q1

REPORT INFORMATION
  Report Type: Report from Study
  Country: FR (occurrence: FR)
  Receive Date: 20150325
  Receipt Date: 20150325
  Transmission Date: 20150721
  Serious: Yes (Hospitalization)
  Sender: FDA-Public Use
  Company Number: FR-ROCHE-1553994

PATIENT
  Sex: Female

DRUGS (2)
  1. RITUXIMAB [Suspect]
     Active Substance: RITUXIMAB
     Indication: RHEUMATOID ARTHRITIS
     Route: 065
     Dates: start: 20060316
  2. METHOTREXATE [Concomitant]
     Active Substance: METHOTREXATE
     Route: 065

REACTIONS (8)
  - Large intestine polyp [Recovered/Resolved]
  - Gastroenteritis [Recovered/Resolved]
  - Bronchitis [Recovered/Resolved]
  - Basal cell carcinoma [Recovered/Resolved]
  - Rhonchi [Recovered/Resolved]
  - Lung disorder [Recovered/Resolved]
  - Abscess [Recovered/Resolved]
  - Hot flush [Recovered/Resolved]

NARRATIVE: CASE EVENT DATE: 20060322
